FAERS Safety Report 4795420-X (Version None)
Quarter: 2005Q4

REPORT INFORMATION
  Report Type: 
  Country: None (occurrence: None)
  Receive Date: 20051007
  Receipt Date: 20050926
  Transmission Date: 20060501
  Serious: Yes (Hospitalization)
  Sender: FDA-Public Use
  Company Number: B0395285A

PATIENT
  Age: 58 Year
  Sex: Female

DRUGS (1)
  1. LITHIUM SALT (LITHIUM SALT) [Suspect]
     Indication: BIPOLAR DISORDER
     Dosage: YEARS

REACTIONS (18)
  - AFFECT LABILITY [None]
  - ANTIPSYCHOTIC DRUG LEVEL INCREASED [None]
  - BLOOD CREATININE INCREASED [None]
  - CARBON DIOXIDE DECREASED [None]
  - CONFUSIONAL STATE [None]
  - DIARRHOEA [None]
  - DYSKINESIA [None]
  - FATIGUE [None]
  - HAEMODIALYSIS [None]
  - HYPOPHOSPHATAEMIA [None]
  - INCOHERENT [None]
  - MEMORY IMPAIRMENT [None]
  - NAUSEA [None]
  - POST PROCEDURAL COMPLICATION [None]
  - REBOUND EFFECT [None]
  - THERAPEUTIC AGENT TOXICITY [None]
  - TREMOR [None]
  - VOMITING [None]
